FAERS Safety Report 7737729-3 (Version None)
Quarter: 2011Q3

REPORT INFORMATION
  Report Type: 
  Country: None (occurrence: None)
  Receive Date: 20110908
  Receipt Date: 20110901
  Transmission Date: 20111222
  Serious: Yes (Hospitalization)
  Sender: FDA-Public Use
  Company Number: FR-ELI_LILLY_AND_COMPANY-FR201109000199

PATIENT
  Sex: Male

DRUGS (10)
  1. ATORVASTATIN CALCIUM [Concomitant]
     Dosage: UNK
     Dates: end: 20110620
  2. LEXOMIL [Concomitant]
  3. PERINDOPRIL ERBUMINE [Concomitant]
     Dosage: UNK
     Dates: end: 20110620
  4. EFFIENT [Suspect]
     Dosage: 10 MG, QD
     Route: 048
     Dates: end: 20110620
  5. ALBUTEROL [Concomitant]
  6. IKOREL [Concomitant]
     Dosage: UNK
     Dates: end: 20110620
  7. SERETIDE [Concomitant]
     Dosage: UNK
     Dates: end: 20110620
  8. ASPIRIN [Concomitant]
     Dosage: 75 MG, QD
     Route: 048
     Dates: end: 20110620
  9. NEBIVOLOL HCL [Concomitant]
     Dosage: UNK
     Dates: end: 20110620
  10. IMOVANE [Concomitant]

REACTIONS (4)
  - HYPERGLYCAEMIA [None]
  - CEREBRAL HAEMORRHAGE [None]
  - CONDITION AGGRAVATED [None]
  - AGITATION [None]
